FAERS Safety Report 8255584-2 (Version None)
Quarter: 2012Q1

REPORT INFORMATION
  Report Type: 
  Country: None (occurrence: None)
  Receive Date: 20120329
  Receipt Date: 20110411
  Transmission Date: 20120608
  Serious: Yes (Hospitalization, Other)
  Sender: FDA-Public Use
  Company Number: BE-022468

PATIENT
  Age: 75 Year
  Sex: Male
  Weight: 76.5 kg

DRUGS (3)
  1. TRAMADOL HCL [Concomitant]
  2. (CHLORAMBUCIL) [Suspect]
     Indication: CHRONIC LYMPHOCYTIC LEUKAEMIA
     Dosage: TABLET 10MG/M2
     Route: 048
     Dates: start: 20110223
  3. ACETAMINOPHEN [Concomitant]

REACTIONS (2)
  - PHARYNGITIS BACTERIAL [None]
  - FEBRILE NEUTROPENIA [None]
